FAERS Safety Report 11145159 (Version 1)
Quarter: 2015Q2

REPORT INFORMATION
  Report Type: Spontaneous
  Country: US (occurrence: None)
  Receive Date: 20150526
  Receipt Date: 20150526
  Transmission Date: 20150821
  Serious: Yes (Other)
  Sender: FDA-Public Use
  Company Number: DEP_02848_2015

PATIENT
  Sex: Female
  Weight: 47.17 kg

DRUGS (3)
  1. LEVOTHYROXINE [Concomitant]
     Active Substance: LEVOTHYROXINE
  2. NUCYNTA [Suspect]
     Active Substance: TAPENTADOL HYDROCHLORIDE
     Indication: PAIN
     Dosage: 50 MG 1X/6 HOURS, ORAL
     Route: 048
     Dates: start: 20150424, end: 2015
  3. LEXAPRO [Concomitant]
     Active Substance: ESCITALOPRAM OXALATE

REACTIONS (10)
  - Dehydration [None]
  - Pain [None]
  - Heart rate increased [None]
  - Somnolence [None]
  - Head discomfort [None]
  - Therapy change [None]
  - Asthenia [None]
  - Drug withdrawal syndrome [None]
  - Lethargy [None]
  - Feeling abnormal [None]

NARRATIVE: CASE EVENT DATE: 20150424
